FAERS Safety Report 25244978 (Version 1)
Quarter: 2025Q2

REPORT INFORMATION
  Report Type: Spontaneous
  Country: US (occurrence: None)
  Receive Date: 20250425
  Receipt Date: 20250425
  Transmission Date: 20250717
  Serious: Yes (Other)
  Sender: FDA-CTU
  Company Number: None

PATIENT
  Age: 64 Year
  Sex: Female

DRUGS (12)
  1. SKYRIZI [Suspect]
     Active Substance: RISANKIZUMAB-RZAA
     Indication: Psoriasis
     Route: 058
  2. SKYRIZI [Suspect]
     Active Substance: RISANKIZUMAB-RZAA
     Indication: Psoriatic arthropathy
  3. VITAMIN D [Concomitant]
     Active Substance: VITAMIN D NOS
  4. VITAMINS [Concomitant]
     Active Substance: VITAMINS
  5. CLOBETASOL [Concomitant]
     Active Substance: CLOBETASOL
  6. ANASTROZOLE [Concomitant]
     Active Substance: ANASTROZOLE
  7. COLACE [Concomitant]
     Active Substance: DOCUSATE SODIUM
  8. ELIQUIS [Concomitant]
     Active Substance: APIXABAN
  9. BISOPROLOL FUMARATE [Concomitant]
     Active Substance: BISOPROLOL FUMARATE
  10. DIGOXIN [Concomitant]
     Active Substance: DIGOXIN
  11. FUROSEMIDE [Concomitant]
     Active Substance: FUROSEMIDE
  12. LEVOTHYROXINE [Concomitant]
     Active Substance: LEVOTHYROXINE

REACTIONS (2)
  - Respiratory tract congestion [None]
  - Immune system disorder [None]

NARRATIVE: CASE EVENT DATE: 20250425
